FAERS Safety Report 15073243 (Version 1)
Quarter: 2018Q2

REPORT INFORMATION
  Report Type: Spontaneous
  Country: JP (occurrence: JP)
  Receive Date: 20180627
  Receipt Date: 20180627
  Transmission Date: 20180711
  Serious: Yes (Other)
  Sender: FDA-Public Use
  Company Number: PHHY2018JP025068

PATIENT
  Age: 77 Year
  Sex: Female
  Weight: 33.5 kg

DRUGS (2)
  1. RAMUCIRUMAB [Suspect]
     Active Substance: RAMUCIRUMAB
     Indication: GASTRIC CANCER
     Dosage: 8 MG/KG, UNK (DAYS 1 AND 15)
     Route: 065
  2. PACLITAXEL. [Suspect]
     Active Substance: PACLITAXEL
     Indication: GASTRIC CANCER
     Dosage: 80 MG/M2, UNK (DAY 1,8 AND 15)
     Route: 065

REACTIONS (7)
  - Proteinuria [Recovering/Resolving]
  - Gastric cancer recurrent [Unknown]
  - Anaemia [Unknown]
  - Product use in unapproved indication [Unknown]
  - Neutropenia [Unknown]
  - Hypertension [Unknown]
  - Decreased appetite [Unknown]
